FAERS Safety Report 17111726 (Version 2)
Quarter: 2020Q1

REPORT INFORMATION
  Report Type: Spontaneous
  Country: US (occurrence: US)
  Receive Date: 20191204
  Receipt Date: 20200102
  Transmission Date: 20200409
  Serious: No
  Sender: FDA-Public Use
  Company Number: US-BAUSCH-BL-2019-060621

PATIENT
  Age: 78 Year
  Sex: Male

DRUGS (3)
  1. LOTEMAX SM [Suspect]
     Active Substance: LOTEPREDNOL ETABONATE
     Indication: DRY EYE
     Dosage: STARTED 4-5 DAYS AGO, 1 SMALL APPLICATION INTO THE LOWER EYELIDS BY THE TEAR DUCTS OF BOTH EYES
     Route: 047
     Dates: start: 2019, end: 20191103
  2. LOTEMAX SM [Suspect]
     Active Substance: LOTEPREDNOL ETABONATE
     Indication: PRODUCT USE IN UNAPPROVED INDICATION
  3. RETAINE PM [Concomitant]
     Active Substance: MINERAL OIL\PETROLATUM
     Indication: DRY EYE
     Dosage: 1 APPLICATION IN BOTH EYES AT NIGHT, AS NEEDED
     Route: 047

REACTIONS (9)
  - Headache [Recovering/Resolving]
  - Dry eye [Not Recovered/Not Resolved]
  - Foreign body sensation in eyes [Recovering/Resolving]
  - Drug ineffective for unapproved indication [Unknown]
  - Inappropriate schedule of product administration [Unknown]
  - Eye pain [Recovering/Resolving]
  - Therapy cessation [Unknown]
  - Product use in unapproved indication [Unknown]
  - Visual impairment [Not Recovered/Not Resolved]

NARRATIVE: CASE EVENT DATE: 2019
